FAERS Safety Report 12448273 (Version 1)
Quarter: 2016Q2

REPORT INFORMATION
  Report Type: Spontaneous
  Country: US (occurrence: US)
  Receive Date: 20160608
  Receipt Date: 20160608
  Transmission Date: 20160815
  Serious: No
  Sender: FDA-Public Use
  Company Number: US-GLAXOSMITHKLINE-US2016075264

PATIENT
  Age: 62 Year
  Sex: Male

DRUGS (15)
  1. ADVAIR DISKUS [Suspect]
     Active Substance: FLUTICASONE PROPIONATE\SALMETEROL XINAFOATE
     Indication: ASTHMA
     Dosage: 1 PUFF(S), BID
     Route: 055
  2. FLUTICASONE PROPIONATE. [Concomitant]
     Active Substance: FLUTICASONE PROPIONATE
  3. VENTOLIN [Concomitant]
     Active Substance: ALBUTEROL SULFATE
  4. OXAZEPAM. [Concomitant]
     Active Substance: OXAZEPAM
  5. PROBENECID/COLCH [Concomitant]
  6. CYCLOSPORINE. [Concomitant]
     Active Substance: CYCLOSPORINE
  7. OMEPRAZOLE. [Concomitant]
     Active Substance: OMEPRAZOLE
  8. PREDNISONE EYE DROPS [Concomitant]
     Active Substance: PREDNISONE
  9. SIMVASTATIN. [Concomitant]
     Active Substance: SIMVASTATIN
  10. CELLCEPT [Concomitant]
     Active Substance: MYCOPHENOLATE MOFETIL\MYCOPHENOLATE MOFETIL HYDROCHLORIDE
  11. ALLOPURINOL. [Concomitant]
     Active Substance: ALLOPURINOL
  12. ASPIRIN. [Concomitant]
     Active Substance: ASPIRIN
  13. CARVEDILOL. [Concomitant]
     Active Substance: CARVEDILOL
  14. PRISTIQ EXTENDED-RELEASE [Concomitant]
     Active Substance: DESVENLAFAXINE SUCCINATE
  15. MONTELUKAST [Concomitant]
     Active Substance: MONTELUKAST SODIUM

REACTIONS (4)
  - Medication error [Unknown]
  - Intentional product use issue [Not Recovered/Not Resolved]
  - Chest discomfort [Not Recovered/Not Resolved]
  - Device use error [Unknown]

NARRATIVE: CASE EVENT DATE: 20160523
